FAERS Safety Report 18781618 (Version 1)
Quarter: 2021Q1

REPORT INFORMATION
  Report Type: Spontaneous
  Country: US (occurrence: US)
  Receive Date: 20210125
  Receipt Date: 20210125
  Transmission Date: 20210419
  Serious: Yes (Other)
  Sender: FDA-Public Use
  Company Number: None

PATIENT
  Sex: Female

DRUGS (2)
  1. TRILAFON [Suspect]
     Active Substance: PERPHENAZINE
  2. CLOZAPINE. [Suspect]
     Active Substance: CLOZAPINE

REACTIONS (1)
  - Drug ineffective [None]
